FAERS Safety Report 9493857 (Version 2)
Quarter: 2013Q4

REPORT INFORMATION
  Report Type: Spontaneous
  Country: US (occurrence: US)
  Receive Date: 20130902
  Receipt Date: 20131210
  Transmission Date: 20140711
  Serious: No
  Sender: FDA-Public Use
  Company Number: US-009507513-1308USA009493

PATIENT
  Sex: Male

DRUGS (1)
  1. REMERON [Suspect]
     Indication: DEPRESSION
     Dosage: UNK
     Route: 048
     Dates: start: 201308

REACTIONS (2)
  - Blood urine [Not Recovered/Not Resolved]
  - Catheter site haemorrhage [Not Recovered/Not Resolved]
